FAERS Safety Report 6556906-0 (Version None)
Quarter: 2010Q1

REPORT INFORMATION
  Report Type: 
  Country: None (occurrence: None)
  Receive Date: 20100126
  Receipt Date: 20100112
  Transmission Date: 20100710
  Serious: Yes (Hospitalization)
  Sender: FDA-Public Use
  Company Number: 004309

PATIENT
  Age: 26 Year
  Sex: Female

DRUGS (3)
  1. LEVETIRACETAM [Suspect]
     Indication: MYOCLONIC EPILEPSY
     Dosage: 500 MG BID ORAL, 500 MG ORAL
     Route: 048
  2. LAMOTRIGINE [Suspect]
     Indication: MYOCLONIC EPILEPSY
     Dosage: 100 MG, 125 MG, 200 MG
  3. CLONAZEPAM [Suspect]
     Indication: MYOCLONUS
     Dosage: SSEE IMAGE

REACTIONS (2)
  - GRAND MAL CONVULSION [None]
  - MYOCLONIC EPILEPSY [None]
